FAERS Safety Report 16215150 (Version 1)
Quarter: 2019Q2

REPORT INFORMATION
  Report Type: Spontaneous
  Country: US (occurrence: US)
  Receive Date: 20190418
  Receipt Date: 20190418
  Transmission Date: 20190711
  Serious: No
  Sender: FDA-Public Use
  Company Number: None

PATIENT
  Age: 40 Year
  Sex: Female
  Weight: 80.1 kg

DRUGS (1)
  1. REMICADE [Suspect]
     Active Substance: INFLIXIMAB
     Indication: COLITIS ULCERATIVE
     Dosage: ?          OTHER FREQUENCY:INDUCTION DOSE TWO;?
     Route: 042
     Dates: start: 20190318, end: 20190318

REACTIONS (2)
  - Adverse drug reaction [None]
  - Infusion related reaction [None]

NARRATIVE: CASE EVENT DATE: 20190318
